FAERS Safety Report 17026772 (Version 1)
Quarter: 2019Q4

REPORT INFORMATION
  Report Type: Spontaneous
  Country: US (occurrence: US)
  Receive Date: 20191009
  Receipt Date: 20191009
  Transmission Date: 20200122
  Serious: Yes (Hospitalization)
  Sender: FDA-Public Use
  Company Number: None

PATIENT
  Age: 81 Year
  Sex: Female
  Weight: 76.66 kg

DRUGS (10)
  1. METOPROLOL. [Concomitant]
     Active Substance: METOPROLOL
  2. XARELTO [Concomitant]
     Active Substance: RIVAROXABAN
  3. PROLIA [Suspect]
     Active Substance: DENOSUMAB
     Indication: BONE DISORDER
     Dosage: ?          QUANTITY:1 DF DOSAGE FORM;OTHER FREQUENCY:TWICE A YEAR;?
     Dates: start: 20190207
  4. FUSOMEADE [Concomitant]
  5. BUSPARONE [Concomitant]
  6. HAIR, SKIN, + NAIL [Concomitant]
  7. VITAMIN C [Concomitant]
     Active Substance: ASCORBIC ACID
  8. VITAMINS [Concomitant]
     Active Substance: VITAMINS
  9. CITRACAL [Concomitant]
     Active Substance: CALCIUM CITRATE
  10. WOMEN VITAMINS [Concomitant]

REACTIONS (6)
  - Swelling [None]
  - Cough [None]
  - Rash [None]
  - Dyspnoea [None]
  - Swelling face [None]
  - Hypersensitivity [None]

NARRATIVE: CASE EVENT DATE: 20190207
